APPROVED DRUG PRODUCT: CABERGOLINE
Active Ingredient: CABERGOLINE
Strength: 0.5MG
Dosage Form/Route: TABLET;ORAL
Application: A078035 | Product #001
Applicant: ACTAVIS LABORATORIES FL INC
Approved: Apr 21, 2008 | RLD: No | RS: No | Type: DISCN